FAERS Safety Report 21665159 (Version 1)
Quarter: 2022Q4

REPORT INFORMATION
  Report Type: Spontaneous
  Country: US (occurrence: US)
  Receive Date: 20221130
  Receipt Date: 20221130
  Transmission Date: 20230113
  Serious: No
  Sender: FDA-Public Use
  Company Number: US-JNJFOC-20221123000

PATIENT
  Age: 50 Year
  Sex: Male
  Weight: 113.50 kg

DRUGS (1)
  1. TREMFYA [Suspect]
     Active Substance: GUSELKUMAB
     Indication: Psoriasis
     Route: 058
     Dates: start: 20220209

REACTIONS (3)
  - Injection site reaction [Recovered/Resolved]
  - Therapeutic response decreased [Unknown]
  - Off label use [Unknown]
